FAERS Safety Report 10024505 (Version 1)
Quarter: 2014Q1

REPORT INFORMATION
  Report Type: Spontaneous
  Country: US (occurrence: None)
  Receive Date: 20140204
  Receipt Date: 20140204
  Transmission Date: 20141002
  Serious: Yes (Hospitalization)
  Sender: FDA-Public Use
  Company Number: 13-05063

PATIENT
  Age: 61 Year
  Sex: Female

DRUGS (2)
  1. ALBUTEROL SULFATE [Suspect]
     Indication: EMPHYSEMA
     Dosage: 1 VIAL QID 054
     Dates: start: 2010, end: 2014
  2. ADVAIR (FLUTICASONE/SALMETEROL) [Concomitant]

REACTIONS (2)
  - Pneumonia [None]
  - Myocardial infarction [None]
